FAERS Safety Report 8574790 (Version 10)
Quarter: 2013Q1

REPORT INFORMATION
  Report Type: Spontaneous
  Country: US (occurrence: US)
  Receive Date: 20120522
  Receipt Date: 20130130
  Transmission Date: 20140127
  Serious: Yes (Hospitalization, Disabling, Other)
  Sender: FDA-Public Use
  Company Number: US-009507513-1205USA02853

PATIENT
  Sex: Female
  Weight: 61.22 kg

DRUGS (7)
  1. FOSAMAX [Suspect]
     Indication: OSTEOPOROSIS
     Dosage: 10 MG, QD
     Route: 048
     Dates: start: 1995, end: 20020403
  2. FOSAMAX [Suspect]
     Dosage: 70 MG QW
     Dates: start: 20020403
  3. ALENDRONATE SODIUM [Suspect]
     Indication: OSTEOPOROSIS
     Dosage: 35 MG, QW
     Route: 048
     Dates: start: 20110929, end: 20120106
  4. FLUTICASONE PROPIONATE [Concomitant]
     Indication: HYPERSENSITIVITY
     Dosage: 40 UNK, UNK
  5. BUSPAR [Concomitant]
     Indication: ANXIETY
     Dosage: UNK
     Dates: start: 1985
  6. CALCIUM + VITAMIN D [Concomitant]
     Indication: OSTEOPOROSIS
     Dosage: 600/400 MG, QD
     Route: 048
  7. ALENDRONATE SODIUM [Suspect]
     Indication: OSTEOPOROSIS
     Dosage: 35 MG, QW
     Route: 048
     Dates: start: 20090219, end: 20110801

REACTIONS (35)
  - Internal fixation of fracture [Not Recovered/Not Resolved]
  - Open reduction of fracture [Recovered/Resolved]
  - Osteoporosis [Not Recovered/Not Resolved]
  - Low turnover osteopathy [Not Recovered/Not Resolved]
  - Breast cancer [Unknown]
  - Mastectomy [Unknown]
  - Breast reconstruction [Unknown]
  - Basal cell carcinoma [Unknown]
  - Neurectomy [Unknown]
  - Femur fracture [Recovered/Resolved]
  - Vitamin D deficiency [Unknown]
  - Sleep apnoea syndrome [Unknown]
  - Hiatus hernia [Unknown]
  - Excoriation [Unknown]
  - Depression [Unknown]
  - Fall [Unknown]
  - Osteoarthritis [Unknown]
  - Tooth abscess [Unknown]
  - Cataract operation [Unknown]
  - Tumour excision [Unknown]
  - Cataract operation [Unknown]
  - Tooth extraction [Unknown]
  - Osteopenia [Unknown]
  - Iron deficiency anaemia [Unknown]
  - Body height decreased [Unknown]
  - Vaginal infection [Recovering/Resolving]
  - External ear pain [Unknown]
  - Morton^s neuroma [Unknown]
  - Weight decreased [Unknown]
  - Heart rate irregular [Unknown]
  - Stress fracture [Unknown]
  - Neoplasm skin [Unknown]
  - Gastrooesophageal reflux disease [Unknown]
  - Dyspepsia [Unknown]
  - Biopsy breast [Unknown]
